FAERS Safety Report 16708502 (Version 4)
Quarter: 2020Q2

REPORT INFORMATION
  Report Type: Spontaneous
  Country: DE (occurrence: DE)
  Receive Date: 20190816
  Receipt Date: 20200502
  Transmission Date: 20200713
  Serious: Yes (Life-Threatening, Hospitalization)
  Sender: FDA-Public Use
  Company Number: DE-B.I. PHARMACEUTICALS,INC./RIDGEFIELD-2019-BI-033431

PATIENT
  Age: 58 Year
  Sex: Female

DRUGS (4)
  1. ORAMORPH [Suspect]
     Active Substance: MORPHINE SULFATE
     Indication: NEURALGIA
     Route: 037
  2. PIRITRAMID [Concomitant]
     Indication: NEURALGIA
     Route: 065
  3. CATAPRES [Suspect]
     Active Substance: CLONIDINE HYDROCHLORIDE
     Indication: NEURALGIA
     Route: 037
  4. ZOPICLON [Concomitant]
     Active Substance: ZOPICLONE
     Indication: NEURALGIA
     Route: 065

REACTIONS (5)
  - Myoclonus [Recovered/Resolved]
  - Retrograde amnesia [Recovered/Resolved]
  - Drug withdrawal syndrome [Not Recovered/Not Resolved]
  - Hypertensive crisis [Not Recovered/Not Resolved]
  - Depressed level of consciousness [Recovered/Resolved]
